FAERS Safety Report 8353302 (Version 2)
Quarter: 2020Q3

REPORT INFORMATION
  Report Type: Report from Study
  Country: KR (occurrence: KR)
  Receive Date: 20120125
  Receipt Date: 20130214
  Transmission Date: 20201104
  Serious: Yes (Hospitalization)
  Sender: FDA-Public Use
  Company Number: KR-JNJFOC-20070603104

PATIENT
  Age: 25 Year
  Sex: Male
  Weight: 75 kg

DRUGS (15)
  1. GOLIMUMAB [Suspect]
     Active Substance: GOLIMUMAB
     Indication: ANKYLOSING SPONDYLITIS
     Dosage: WEEK 16
     Route: 058
     Dates: start: 20070115
  2. ACECLOFENAC [Concomitant]
     Active Substance: ACECLOFENAC
     Route: 048
     Dates: start: 20060228
  3. GOLIMUMAB [Suspect]
     Active Substance: GOLIMUMAB
     Indication: ANKYLOSING SPONDYLITIS
     Dosage: WEEK 24
     Route: 058
     Dates: start: 20070212
  4. TRAMADOL HYDROCHLORIDE. [Concomitant]
     Active Substance: TRAMADOL HYDROCHLORIDE
     Route: 048
     Dates: start: 20060228
  5. SULFASALAZINE. [Concomitant]
     Active Substance: SULFASALAZINE
     Route: 048
     Dates: start: 20060801
  6. GOLIMUMAB [Suspect]
     Active Substance: GOLIMUMAB
     Indication: ANKYLOSING SPONDYLITIS
     Dosage: WEEK 4
     Route: 058
     Dates: start: 20060925
  7. GOLIMUMAB [Suspect]
     Active Substance: GOLIMUMAB
     Indication: ANKYLOSING SPONDYLITIS
     Dosage: WEEK 32
     Route: 058
     Dates: start: 20070409
  8. GOLIMUMAB [Suspect]
     Active Substance: GOLIMUMAB
     Indication: ANKYLOSING SPONDYLITIS
     Dosage: WEEK 8
     Route: 058
     Dates: start: 20061023
  9. FAMOTIDINE. [Concomitant]
     Active Substance: FAMOTIDINE
     Route: 048
     Dates: start: 20060207
  10. GOLIMUMAB [Suspect]
     Active Substance: GOLIMUMAB
     Indication: ANKYLOSING SPONDYLITIS
     Dosage: WEEK 0
     Route: 058
     Dates: start: 20060828
  11. GOLIMUMAB [Suspect]
     Active Substance: GOLIMUMAB
     Indication: ANKYLOSING SPONDYLITIS
     Dosage: WEEK 28
     Route: 058
     Dates: start: 20070312
  12. GOLIMUMAB [Suspect]
     Active Substance: GOLIMUMAB
     Indication: ANKYLOSING SPONDYLITIS
     Dosage: WEEK 36
     Route: 058
     Dates: start: 20070507
  13. GOLIMUMAB [Suspect]
     Active Substance: GOLIMUMAB
     Indication: ANKYLOSING SPONDYLITIS
     Dosage: WEEK 40
     Route: 058
     Dates: start: 20070604
  14. GOLIMUMAB [Suspect]
     Active Substance: GOLIMUMAB
     Indication: ANKYLOSING SPONDYLITIS
     Dosage: WEEK 12
     Route: 058
     Dates: start: 20061120
  15. PREDNISONE. [Concomitant]
     Active Substance: PREDNISONE
     Route: 048
     Dates: start: 20060801

REACTIONS (1)
  - Pulmonary tuberculosis [Recovered/Resolved]

NARRATIVE: CASE EVENT DATE: 20070613
